FAERS Safety Report 10006075 (Version 1)
Quarter: 2014Q1

REPORT INFORMATION
  Report Type: Spontaneous
  Country: DE (occurrence: DE)
  Receive Date: 20140313
  Receipt Date: 20140313
  Transmission Date: 20141002
  Serious: Yes (Other)
  Sender: FDA-Public Use
  Company Number: DE-UCBSA-114456

PATIENT
  Age: 77 Year
  Sex: Male

DRUGS (1)
  1. KEPPRA [Suspect]
     Dosage: UNKNOWN DOSE
     Route: 042
     Dates: start: 201403

REACTIONS (1)
  - Purple glove syndrome [Unknown]
